FAERS Safety Report 9809078 (Version 2)
Quarter: 2014Q1

REPORT INFORMATION
  Report Type: Spontaneous
  Country: FR (occurrence: FR)
  Receive Date: 20140110
  Receipt Date: 20140110
  Transmission Date: 20141002
  Serious: Yes (Hospitalization)
  Sender: FDA-Public Use
  Company Number: PHHY2013FR149195

PATIENT
  Age: 84 Year
  Sex: Female

DRUGS (11)
  1. VOLTARENE [Suspect]
     Indication: PAIN IN EXTREMITY
     Dosage: UNK UKN, UNK
     Route: 042
     Dates: start: 20130909, end: 20130915
  2. COLTRAMYL [Suspect]
     Indication: PAIN IN EXTREMITY
     Route: 048
     Dates: start: 20130909, end: 20130915
  3. LAMALINE [Suspect]
     Indication: PAIN IN EXTREMITY
     Route: 048
     Dates: start: 20130909, end: 20130915
  4. ZANIDIP [Concomitant]
     Indication: HYPERTENSION
     Dosage: 20 MG, QD
     Route: 048
  5. LEVOTHYROX [Concomitant]
     Indication: HYPOTHYROIDISM
     Dosage: 75.25 UG, QD
     Route: 048
  6. KALEORID LP [Concomitant]
     Dosage: 2 DF, QD
     Route: 048
  7. METFORMIN [Concomitant]
     Indication: TYPE 2 DIABETES MELLITUS
     Dosage: 3 G, QD
     Route: 048
  8. ADENURIC [Concomitant]
     Dosage: 1 DF, QD
     Route: 048
  9. LASILIX [Concomitant]
     Indication: HYPERTENSION
     Dosage: 20 MG, QD
     Route: 048
  10. COTAREG [Concomitant]
     Indication: HYPERTENSION
     Dosage: 1 DF (160 MG / 25 MG), QD
     Route: 048
  11. IXPRIM [Concomitant]
     Indication: PAIN
     Dosage: 1 DF (37.5 MG/325 MG), TID
     Route: 048

REACTIONS (3)
  - Limb discomfort [Recovered/Resolved]
  - Abdominal pain upper [Recovered/Resolved]
  - Malaise [Unknown]
